FAERS Safety Report 19978499 (Version 1)
Quarter: 2021Q4

REPORT INFORMATION
  Report Type: Spontaneous
  Country: US (occurrence: US)
  Receive Date: 20211021
  Receipt Date: 20211021
  Transmission Date: 20220303
  Serious: Yes (Other)
  Sender: FDA-Public Use
  Company Number: None

PATIENT
  Age: 86 Year
  Sex: Female
  Weight: 46.5 kg

DRUGS (4)
  1. REMDESIVIR [Suspect]
     Active Substance: REMDESIVIR
     Indication: COVID-19 pneumonia
     Route: 041
     Dates: start: 20211017, end: 20211019
  2. Norepinephrine 4 mg/250 ml [Concomitant]
     Dates: start: 20211017, end: 20211019
  3. Albumin 12.5 g/250 mL [Concomitant]
     Dates: start: 20211017, end: 20211019
  4. Sodium Chloride 0.9% 1000 mL 50 ml/h [Concomitant]
     Dates: start: 20211017, end: 20211017

REACTIONS (1)
  - Skin discolouration [None]

NARRATIVE: CASE EVENT DATE: 20211018
